FAERS Safety Report 6679263-8 (Version None)
Quarter: 2010Q2

REPORT INFORMATION
  Report Type: 
  Country: None (occurrence: None)
  Receive Date: 20100413
  Receipt Date: 20100401
  Transmission Date: 20101027
  Serious: Yes (Other)
  Sender: FDA-Public Use
  Company Number: US-PFIZER INC-2010042167

PATIENT
  Sex: Female
  Weight: 79.365 kg

DRUGS (2)
  1. CHANTIX [Suspect]
     Indication: SMOKING CESSATION THERAPY
     Dosage: 0.5 MG, 1X/DAY
     Route: 048
     Dates: start: 20100301
  2. AMOXICILLIN [Concomitant]
     Indication: PNEUMONIA
     Dosage: UNK

REACTIONS (4)
  - AFFECT LABILITY [None]
  - DISORIENTATION [None]
  - DISTURBANCE IN ATTENTION [None]
  - READING DISORDER [None]
